FAERS Safety Report 24835535 (Version 2)
Quarter: 2025Q1

REPORT INFORMATION
  Report Type: Spontaneous
  Country: PL (occurrence: PL)
  Receive Date: 20250113
  Receipt Date: 20250211
  Transmission Date: 20250409
  Serious: Yes (Other)
  Sender: BANNER
  Company Number: None

PATIENT
  Age: 36 Year
  Sex: Female

DRUGS (25)
  1. DOXYLAMINE [Interacting]
     Active Substance: DOXYLAMINE
     Indication: Sleep disorder
  2. AMOXICILLIN [Suspect]
     Active Substance: AMOXICILLIN
     Indication: Toothache
  3. BENZYDAMINE [Suspect]
     Active Substance: BENZYDAMINE
     Indication: Toothache
     Route: 061
  4. BUPRENORPHINE [Suspect]
     Active Substance: BUPRENORPHINE
     Indication: Toothache
  5. CHLORHEXIDINE [Suspect]
     Active Substance: CHLORHEXIDINE
     Indication: Toothache
     Route: 061
  6. CLINDAMYCIN [Suspect]
     Active Substance: CLINDAMYCIN
     Indication: Toothache
  7. ACETAMINOPHEN\CODEINE PHOSPHATE [Suspect]
     Active Substance: ACETAMINOPHEN\CODEINE PHOSPHATE
     Indication: Toothache
  8. DULOXETINE HYDROCHLORIDE [Suspect]
     Active Substance: DULOXETINE HYDROCHLORIDE
     Indication: Pain
  9. DIAZEPAM [Suspect]
     Active Substance: DIAZEPAM
     Indication: Toothache
  10. DICLOFENAC [Suspect]
     Active Substance: DICLOFENAC
     Indication: Toothache
     Route: 061
  11. ETORICOXIB [Suspect]
     Active Substance: ETORICOXIB
     Indication: Pain
  12. FLURBIPROFEN SODIUM [Suspect]
     Active Substance: FLURBIPROFEN SODIUM
     Indication: Toothache
     Route: 061
  13. IBUPROFEN [Suspect]
     Active Substance: IBUPROFEN
     Indication: Toothache
  14. LIDOCAINE HYDROCHLORIDE [Suspect]
     Active Substance: LIDOCAINE HYDROCHLORIDE
     Indication: Toothache
     Route: 061
  15. METAMIZOLE [Suspect]
     Active Substance: METAMIZOLE
     Indication: Gingival pain
  16. MORPHINE [Suspect]
     Active Substance: MORPHINE
     Indication: Toothache
     Route: 061
  17. PREGABALIN [Suspect]
     Active Substance: PREGABALIN
     Indication: Product used for unknown indication
  18. ACETAMINOPHEN [Suspect]
     Active Substance: ACETAMINOPHEN
     Indication: Toothache
  19. TRAZODONE [Suspect]
     Active Substance: TRAZODONE HYDROCHLORIDE
     Indication: Pain
  20. IPIDACRINE [Concomitant]
     Active Substance: IPIDACRINE
     Indication: Product used for unknown indication
  21. KETOPROFEN [Concomitant]
     Active Substance: KETOPROFEN
     Indication: Toothache
  22. OXYCODONE [Concomitant]
     Active Substance: OXYCODONE
     Indication: Toothache
  23. DOXYLAMINE [Interacting]
     Active Substance: DOXYLAMINE
     Indication: Insomnia
     Dosage: 25 MG AT NIGHT
  24. ESCITALOPRAM [Interacting]
     Active Substance: ESCITALOPRAM OXALATE
     Indication: Depression
  25. ESCITALOPRAM [Interacting]
     Active Substance: ESCITALOPRAM OXALATE
     Indication: Insomnia

REACTIONS (8)
  - Drug interaction [Recovered/Resolved]
  - Hyperaesthesia [Recovered/Resolved]
  - Dry mouth [Unknown]
  - Toothache [Recovering/Resolving]
  - Somnolence [Unknown]
  - Central pain syndrome [Recovered/Resolved]
  - Hyperaesthesia [Recovered/Resolved]
  - Gingival pain [Recovering/Resolving]
